FAERS Safety Report 11412647 (Version 2)
Quarter: 2015Q3

REPORT INFORMATION
  Report Type: Spontaneous
  Country: US (occurrence: US)
  Receive Date: 20150821
  Receipt Date: 20150903
  Transmission Date: 20151125
  Serious: No
  Sender: FDA-Public Use
  Company Number: US-ELI_LILLY_AND_COMPANY-US201108006596

PATIENT
  Age: 56 Year
  Sex: Male

DRUGS (7)
  1. ZESTRIL [Concomitant]
     Active Substance: LISINOPRIL
     Dosage: 10 MG, UNKNOWN
  2. HUMALOG MIX50/50 [Suspect]
     Active Substance: INSULIN LISPRO
     Indication: TYPE 2 DIABETES MELLITUS
     Dosage: 56 U, QD
     Route: 065
     Dates: start: 2005, end: 2008
  3. GLUCOPHAGE [Concomitant]
     Active Substance: METFORMIN HYDROCHLORIDE
     Dosage: 1000 U, BID
  4. ASPIRIN. [Concomitant]
     Active Substance: ASPIRIN
     Indication: CARDIAC DISORDER
     Dosage: UNK, EACH MORNING
  5. HUMULIN R [Suspect]
     Active Substance: INSULIN HUMAN
     Indication: TYPE 2 DIABETES MELLITUS
     Dosage: 26 U, BID
     Route: 065
     Dates: start: 2008
  6. NEURONTIN [Concomitant]
     Active Substance: GABAPENTIN
     Indication: NEUROPATHY PERIPHERAL
     Dosage: 600 MG, BID
  7. ZOCOR [Concomitant]
     Active Substance: SIMVASTATIN
     Dosage: 10 MG, UNKNOWN

REACTIONS (13)
  - Neuropathy peripheral [Not Recovered/Not Resolved]
  - Cardiac disorder [Unknown]
  - Vomiting [Recovering/Resolving]
  - Blood pressure abnormal [Unknown]
  - Blood glucose increased [Recovered/Resolved]
  - Nervousness [Recovering/Resolving]
  - Protein urine present [Unknown]
  - Blood glucose increased [Recovering/Resolving]
  - Hyperhidrosis [Recovering/Resolving]
  - Malaise [Recovering/Resolving]
  - Pallor [Recovering/Resolving]
  - Abdominal discomfort [Recovering/Resolving]
  - Dizziness [Recovering/Resolving]

NARRATIVE: CASE EVENT DATE: 20110818
